FAERS Safety Report 5173812-7 (Version None)
Quarter: 2006Q4

REPORT INFORMATION
  Report Type: 
  Country: None (occurrence: None)
  Receive Date: 20061214
  Receipt Date: 20061026
  Transmission Date: 20070319
  Serious: Yes (Hospitalization)
  Sender: FDA-Public Use
  Company Number: FR-GLAXOSMITHKLINE-B0444589A

PATIENT
  Age: 86 Year
  Sex: Male

DRUGS (4)
  1. AUGMENTIN '125' [Suspect]
     Dosage: 2G PER DAY
     Route: 048
     Dates: start: 20060813, end: 20060818
  2. ARCALION [Concomitant]
     Dosage: 2UNIT PER DAY
     Route: 048
     Dates: start: 20060713, end: 20060728
  3. TENSTATEN [Concomitant]
     Dosage: 2UNIT PER DAY
     Route: 048
  4. BUDESONIDE [Concomitant]
     Dosage: 2UNIT PER DAY
     Route: 048

REACTIONS (11)
  - ABDOMINAL PAIN UPPER [None]
  - ALANINE AMINOTRANSFERASE INCREASED [None]
  - ASPARTATE AMINOTRANSFERASE INCREASED [None]
  - BLOOD ALKALINE PHOSPHATASE INCREASED [None]
  - BLOOD BILIRUBIN INCREASED [None]
  - CONFUSIONAL STATE [None]
  - DYSPHAGIA [None]
  - HEPATITIS CHOLESTATIC [None]
  - NAUSEA [None]
  - OCULAR ICTERUS [None]
  - WEIGHT DECREASED [None]
